FAERS Safety Report 19139049 (Version 1)
Quarter: 2021Q2

REPORT INFORMATION
  Report Type: Spontaneous
  Country: DE (occurrence: CN)
  Receive Date: 20210415
  Receipt Date: 20210415
  Transmission Date: 20210717
  Serious: Yes (Other)
  Sender: FDA-Public Use
  Company Number: CN-ELI_LILLY_AND_COMPANY-CN202104004528

PATIENT
  Age: 62 Year
  Sex: Male
  Weight: 60 kg

DRUGS (5)
  1. CALCIUM FOLINATE [Concomitant]
     Active Substance: LEUCOVORIN CALCIUM
     Indication: COLON CANCER
     Dosage: 0.7 G, OTHER (ONCE EVERY TWO WEEKS)
     Route: 041
     Dates: start: 20210122
  2. FLUOROURACIL. [Suspect]
     Active Substance: FLUOROURACIL
     Indication: COLON CANCER
     Dosage: 0.7 G (ONCE EVERY TWO WEEKS)
     Route: 040
     Dates: start: 20210122
  3. FLUOROURACIL. [Suspect]
     Active Substance: FLUOROURACIL
     Dosage: 4.5 G, OTHER (ONCE EVERY TWO WEEKS)
     Route: 041
     Dates: start: 20210122
  4. ERBITUX [Suspect]
     Active Substance: CETUXIMAB
     Indication: COLON CANCER
     Dosage: .9 G, UNK (ONCE EVERY TWO WEEKS)
     Route: 041
     Dates: start: 20210122
  5. OXALIPLATIN. [Suspect]
     Active Substance: OXALIPLATIN
     Indication: COLON CANCER
     Dosage: 0.15 G, OTHER (ONCE EVERY TWO WEEKS)
     Route: 041
     Dates: start: 20210122

REACTIONS (1)
  - Myelosuppression [Recovering/Resolving]

NARRATIVE: CASE EVENT DATE: 20210311
